FAERS Safety Report 10213501 (Version 2)
Quarter: 2014Q2

REPORT INFORMATION
  Report Type: Not Available
  Country: US (occurrence: US)
  Receive Date: 20140603
  Receipt Date: 20140617
  Transmission Date: 20141212
  Serious: No
  Sender: FDA-Public Use
  Company Number: US-LUPIN PHARMACEUTICALS INC.-2014-01065

PATIENT
  Sex: Male
  Weight: 113.5 kg

DRUGS (2)
  1. LISINOPRIL TABLETS USP 10MG [Suspect]
     Indication: BLOOD PRESSURE
     Dosage: HALF TABLET ONCE A DAY
     Dates: start: 2013, end: 2013
  2. LISINOPRIL TABLETS USP 10MG [Suspect]
     Dates: start: 2013, end: 2013

REACTIONS (5)
  - Abdominal pain upper [Not Recovered/Not Resolved]
  - Dyspepsia [Not Recovered/Not Resolved]
  - Pain in extremity [Not Recovered/Not Resolved]
  - Hypotension [Unknown]
  - Dyskinesia [Not Recovered/Not Resolved]
